FAERS Safety Report 20369782 (Version 1)
Quarter: 2022Q1

REPORT INFORMATION
  Report Type: Spontaneous
  Country: US (occurrence: None)
  Receive Date: 20220121
  Receipt Date: 20220121
  Transmission Date: 20220423
  Serious: Yes (Life-Threatening, Hospitalization)
  Sender: FDA-Public Use
  Company Number: None

PATIENT
  Age: 68 Year
  Sex: Male
  Weight: 128.25 kg

DRUGS (8)
  1. FARXIGA [Suspect]
     Active Substance: DAPAGLIFLOZIN PROPANEDIOL
     Indication: Diabetes mellitus
     Dosage: OTHER QUANTITY : 30 TABLET(S);?FREQUENCY : DAILY;?
     Route: 048
     Dates: start: 20211202, end: 20211208
  2. BYETTA [Concomitant]
     Active Substance: EXENATIDE
  3. ISODUR [Concomitant]
  4. CANDESARTAN [Concomitant]
     Active Substance: CANDESARTAN
  5. DYNACIRC [Concomitant]
     Active Substance: ISRADIPINE
  6. ASPIRIN [Concomitant]
     Active Substance: ASPIRIN
  7. FLAXSEED [Concomitant]
     Active Substance: FLAX SEED
  8. TEA [Concomitant]
     Active Substance: TEA LEAF

REACTIONS (1)
  - Sepsis [None]

NARRATIVE: CASE EVENT DATE: 20211208
